FAERS Safety Report 8397468-5 (Version None)
Quarter: 2012Q2

REPORT INFORMATION
  Report Type: 
  Country: None (occurrence: None)
  Receive Date: 20120531
  Receipt Date: 20120518
  Transmission Date: 20120825
  Serious: Yes (Other)
  Sender: FDA-Public Use
  Company Number: CA-JNJFOC-20120516911

PATIENT
  Sex: Female
  Weight: 41.46 kg

DRUGS (2)
  1. REMICADE [Suspect]
     Route: 042
  2. REMICADE [Suspect]
     Indication: RHEUMATOID ARTHRITIS
     Route: 042
     Dates: start: 20111115

REACTIONS (5)
  - MUSCULAR WEAKNESS [None]
  - ERYTHEMA [None]
  - NASOPHARYNGITIS [None]
  - SINUSITIS [None]
  - OEDEMA PERIPHERAL [None]
